FAERS Safety Report 16179993 (Version 1)
Quarter: 2019Q2

REPORT INFORMATION
  Report Type: Spontaneous
  Country: US (occurrence: US)
  Receive Date: 20190410
  Receipt Date: 20190410
  Transmission Date: 20190711
  Serious: No
  Sender: FDA-Public Use
  Company Number: US-BAYER-2019-066932

PATIENT
  Age: 57 Year
  Sex: Female
  Weight: 58 kg

DRUGS (4)
  1. CLARITIN [Suspect]
     Active Substance: LORATADINE
     Indication: NASOPHARYNGITIS
  2. CLARITIN [Suspect]
     Active Substance: LORATADINE
     Indication: INCREASED UPPER AIRWAY SECRETION
  3. CLARITIN [Suspect]
     Active Substance: LORATADINE
     Indication: HYPERSENSITIVITY
     Route: 048
     Dates: start: 20190402, end: 20190402
  4. CLARITIN [Suspect]
     Active Substance: LORATADINE
     Indication: RHINORRHOEA

REACTIONS (3)
  - Therapeutic response unexpected [Unknown]
  - Nervousness [Unknown]
  - Feeling jittery [Unknown]

NARRATIVE: CASE EVENT DATE: 20190402
